FAERS Safety Report 19878347 (Version 1)
Quarter: 2021Q3

REPORT INFORMATION
  Report Type: Spontaneous
  Country: US (occurrence: US)
  Receive Date: 20210922
  Receipt Date: 20210922
  Transmission Date: 20211014
  Serious: No
  Sender: FDA-Public Use
  Company Number: None

PATIENT

DRUGS (2)
  1. PYRIDOXINE HCL [Suspect]
     Active Substance: PYRIDOXINE HYDROCHLORIDE
  2. PYRIDOSTIGMINE [Suspect]
     Active Substance: PYRIDOSTIGMINE

REACTIONS (4)
  - Product name confusion [None]
  - Product prescribing error [None]
  - Product selection error [None]
  - Intercepted product administration error [None]
